FAERS Safety Report 8215814-X (Version None)
Quarter: 2012Q1

REPORT INFORMATION
  Report Type: 
  Country: None (occurrence: None)
  Receive Date: 20120316
  Receipt Date: 20111031
  Transmission Date: 20120608
  Serious: Yes (Other)
  Sender: FDA-Public Use
  Company Number: US-ROCHE-GNE324255

PATIENT
  Sex: Female

DRUGS (3)
  1. LIPITOR [Concomitant]
  2. VITAMIN TAB [Concomitant]
  3. RANIBIZUMAB [Suspect]
     Indication: AGE-RELATED MACULAR DEGENERATION
     Dosage: 0.5 UNK, UNK
     Route: 050

REACTIONS (10)
  - EYE SWELLING [None]
  - EYE INJURY [None]
  - INJECTION SITE PAIN [None]
  - PHOTOPHOBIA [None]
  - RETINAL DEGENERATION [None]
  - OCULAR HYPERAEMIA [None]
  - PAIN [None]
  - EYE DISCHARGE [None]
  - CONJUNCTIVITIS [None]
  - LACRIMATION INCREASED [None]
